FAERS Safety Report 6318553-5 (Version None)
Quarter: 2009Q3

REPORT INFORMATION
  Report Type: 
  Country: None (occurrence: None)
  Receive Date: 20090821
  Receipt Date: 20090810
  Transmission Date: 20100115
  Serious: Yes (Hospitalization, Other)
  Sender: FDA-Public Use
  Company Number: PHHY2008JP14440

PATIENT
  Sex: Male
  Weight: 51 kg

DRUGS (7)
  1. TEGRETOL [Suspect]
     Indication: TRIGEMINAL NEURALGIA
     Dosage: 1 DF, QD
     Route: 048
     Dates: start: 20080403, end: 20080404
  2. TEGRETOL [Suspect]
     Dosage: 200 MG, BID
     Route: 048
     Dates: start: 20080405, end: 20080417
  3. AMLODIPINE BESYLATE [Interacting]
     Indication: HYPERTENSION
     Dosage: 5 MG / DAY
     Route: 048
     Dates: start: 20080414, end: 20080426
  4. DIOVAN [Concomitant]
     Indication: HYPERTENSION
     Dosage: 40 MG/ DAY
     Route: 048
     Dates: start: 20080418, end: 20080424
  5. PERDIPINE [Concomitant]
     Indication: HYPERTENSION
     Dosage: 48 ML
     Dates: start: 20080411, end: 20080413
  6. SOLU-MEDROL [Concomitant]
     Dosage: 3000 MG
     Route: 042
     Dates: start: 20080411, end: 20080413
  7. STEROIDS NOS [Concomitant]

REACTIONS (11)
  - ALTERED STATE OF CONSCIOUSNESS [None]
  - BLOOD FIBRINOGEN INCREASED [None]
  - BLOOD PRESSURE DIASTOLIC INCREASED [None]
  - BLOOD PRESSURE SYSTOLIC INCREASED [None]
  - DRUG INTERACTION [None]
  - HAEMATOCRIT INCREASED [None]
  - HAEMOGLOBIN DECREASED [None]
  - HYPERTENSION [None]
  - MEAN CELL HAEMOGLOBIN CONCENTRATION INCREASED [None]
  - REVERSIBLE POSTERIOR LEUKOENCEPHALOPATHY SYNDROME [None]
  - VASOGENIC CEREBRAL OEDEMA [None]
